FAERS Safety Report 13096046 (Version 1)
Quarter: 2017Q1

REPORT INFORMATION
  Report Type: Spontaneous
  Country: RU (occurrence: RU)
  Receive Date: 20170109
  Receipt Date: 20170109
  Transmission Date: 20170428
  Serious: Yes (Other)
  Sender: FDA-Public Use
  Company Number: RU-BRISTOL-MYERS SQUIBB COMPANY-BMS-2016-112215

PATIENT
  Sex: Female
  Weight: 75 kg

DRUGS (2)
  1. GLUCOPHAGE [Suspect]
     Active Substance: METFORMIN HYDROCHLORIDE
     Indication: PRODUCT USED FOR UNKNOWN INDICATION
     Dosage: UNK
     Route: 065
  2. GLUCOPHAGE [Suspect]
     Active Substance: METFORMIN HYDROCHLORIDE
     Indication: PRODUCT USED FOR UNKNOWN INDICATION
     Dosage: 500 MG, BID
     Route: 065
     Dates: start: 20150715

REACTIONS (7)
  - Dizziness [Unknown]
  - Cholestasis [Recovered/Resolved]
  - Hepatic pain [Recovered/Resolved]
  - Hepatomegaly [Recovered/Resolved]
  - Nausea [Unknown]
  - Weight decreased [Unknown]
  - Self-medication [Unknown]
